FAERS Safety Report 16555908 (Version 3)
Quarter: 2020Q1

REPORT INFORMATION
  Report Type: Spontaneous
  Country: SK (occurrence: SK)
  Receive Date: 20190710
  Receipt Date: 20200227
  Transmission Date: 20200409
  Serious: Yes (Other)
  Sender: FDA-Public Use
  Company Number: SK-MYLANLABS-2019M1063483

PATIENT
  Age: 62 Year
  Sex: Male

DRUGS (6)
  1. CARBOPLATIN. [Suspect]
     Active Substance: CARBOPLATIN
     Indication: METASTATIC MALIGNANT MELANOMA
     Dosage: UNK, CYCLE (2 CYCLICAL)
     Route: 065
     Dates: end: 2017
  2. PACLITAXEL. [Suspect]
     Active Substance: PACLITAXEL
     Indication: AXILLARY MASS
     Dosage: UNK
  3. CARBOPLATIN. [Suspect]
     Active Substance: CARBOPLATIN
     Indication: AXILLARY MASS
     Dosage: UNK
  4. PACLITAXEL. [Suspect]
     Active Substance: PACLITAXEL
     Indication: METASTATIC MALIGNANT MELANOMA
     Dosage: UNK UNK, CYCLE (2 CYCLICAL)
     Route: 065
     Dates: end: 2017
  5. DACARBAZINE. [Suspect]
     Active Substance: DACARBAZINE
     Indication: METASTATIC MALIGNANT MELANOMA
     Dosage: UNK
     Route: 005
  6. METFORMIN [Concomitant]
     Active Substance: METFORMIN HYDROCHLORIDE
     Indication: DIABETES MELLITUS
     Dosage: UNK
     Route: 065

REACTIONS (7)
  - Anaphylactic reaction [Unknown]
  - Metastatic malignant melanoma [Unknown]
  - Off label use [Unknown]
  - Malignant neoplasm progression [Unknown]
  - Anaphylactic shock [Unknown]
  - Dyspnoea [Unknown]
  - Product use in unapproved indication [Unknown]
